FAERS Safety Report 5049376-5 (Version None)
Quarter: 2006Q3

REPORT INFORMATION
  Report Type: 
  Country: None (occurrence: None)
  Receive Date: 20060707
  Receipt Date: 20060626
  Transmission Date: 20061208
  Serious: Yes (Hospitalization)
  Sender: FDA-Public Use
  Company Number: HQWYE390726JUN06

PATIENT
  Age: 81 Year
  Sex: Male

DRUGS (8)
  1. CORDARONE [Suspect]
     Indication: ARRHYTHMIA
     Dates: end: 20051101
  2. LISINOPRIL [Concomitant]
  3. LIPITOR [Concomitant]
  4. LASIX [Concomitant]
  5. IMDUR [Concomitant]
  6. PLAVIX [Concomitant]
  7. ASPIRIN [Concomitant]
  8. SOTALOL (SOTALOL) [Concomitant]

REACTIONS (2)
  - MALLORY-WEISS SYNDROME [None]
  - OESOPHAGEAL ULCER HAEMORRHAGE [None]
